FAERS Safety Report 16207596 (Version 4)
Quarter: 2020Q3

REPORT INFORMATION
  Report Type: Spontaneous
  Country: US (occurrence: US)
  Receive Date: 20190417
  Receipt Date: 20200805
  Transmission Date: 20201102
  Serious: Yes (Hospitalization)
  Sender: FDA-Public Use
  Company Number: US-PFIZER INC-2019149809

PATIENT
  Age: 64 Year
  Sex: Male

DRUGS (3)
  1. FLECTOR [Suspect]
     Active Substance: DICLOFENAC EPOLAMINE
     Dosage: 14 DF, DAILY (7 PATCHES ON EACH FOOT DAILY)
  2. FLECTOR [Suspect]
     Active Substance: DICLOFENAC EPOLAMINE
     Dosage: 4 DF, 3X/DAY (2 PATCHES THREE TIMES A DAY PER FOOT QUANTITY 360 AND 3 REFILLS)
  3. FLECTOR [Suspect]
     Active Substance: DICLOFENAC EPOLAMINE
     Indication: PAIN
     Dosage: 2 DF, 2X/DAY (1 PATCH PER FOOT TWICE A DAY)

REACTIONS (5)
  - Intentional product misuse [Unknown]
  - Pain in extremity [Unknown]
  - Gastrointestinal disorder [Unknown]
  - Memory impairment [Unknown]
  - Urinary tract disorder [Unknown]
